FAERS Safety Report 6902899-3 (Version None)
Quarter: 2010Q3

REPORT INFORMATION
  Report Type: 
  Country: None (occurrence: None)
  Receive Date: 20100803
  Receipt Date: 20080827
  Transmission Date: 20110219
  Serious: Yes (Other)
  Sender: FDA-Public Use
  Company Number: US-PFIZER INC-2008071606

PATIENT
  Age: 48 Year
  Sex: Male

DRUGS (1)
  1. LYRICA [Suspect]

REACTIONS (3)
  - LEUKOPENIA [None]
  - MYALGIA [None]
  - PYREXIA [None]
